FAERS Safety Report 13397526 (Version 24)
Quarter: 2022Q2

REPORT INFORMATION
  Report Type: Spontaneous
  Country: US (occurrence: US)
  Receive Date: 20170403
  Receipt Date: 20220511
  Transmission Date: 20220721
  Serious: Yes (Hospitalization, Other)
  Sender: FDA-Public Use
  Company Number: US-INCYTE CORPORATION-2017IN001414

PATIENT

DRUGS (15)
  1. JAKAFI [Suspect]
     Active Substance: RUXOLITINIB
     Indication: Myelofibrosis
     Dosage: 15 MG, BID
     Route: 048
     Dates: start: 20161216
  2. JAKAFI [Suspect]
     Active Substance: RUXOLITINIB
     Dosage: 10 MG, BID
     Route: 048
     Dates: start: 20161216
  3. JAKAFI [Suspect]
     Active Substance: RUXOLITINIB
     Dosage: 5 MG, BID
     Route: 048
     Dates: start: 20161216, end: 20180627
  4. JAKAFI [Suspect]
     Active Substance: RUXOLITINIB
     Dosage: 5 MG, BID
     Route: 048
     Dates: start: 20180713
  5. JAKAFI [Suspect]
     Active Substance: RUXOLITINIB
     Dosage: 5 MG, BID
     Route: 048
     Dates: start: 20161216
  6. CARBIDOPA\LEVODOPA [Suspect]
     Active Substance: CARBIDOPA\LEVODOPA
     Indication: Parkinson^s disease
     Dosage: UNK
     Route: 065
  7. LOSARTAN AND HYDROCHLOROTHIAZIDE [Concomitant]
     Active Substance: HYDROCHLOROTHIAZIDE\LOSARTAN POTASSIUM
     Indication: Product used for unknown indication
     Dosage: UNK
     Route: 065
     Dates: start: 20220505
  8. LOSARTAN AND HYDROCHLOROTHIAZIDE [Concomitant]
     Active Substance: HYDROCHLOROTHIAZIDE\LOSARTAN POTASSIUM
     Indication: Blood pressure measurement
  9. TYLENOL                            /00020001/ [Concomitant]
     Indication: Product used for unknown indication
     Dosage: UNK, PRN
     Route: 065
  10. ADVIL                              /00044201/ [Concomitant]
     Indication: Product used for unknown indication
     Dosage: UNK
     Route: 065
  11. ZANTAC [Concomitant]
     Active Substance: RANITIDINE HYDROCHLORIDE
     Indication: Product used for unknown indication
     Dosage: UNK, PRN
     Route: 065
  12. ASPIRIN [Concomitant]
     Active Substance: ASPIRIN
     Indication: Product used for unknown indication
     Dosage: UNK
     Route: 065
  13. DORZOLAMIDE [Concomitant]
     Active Substance: DORZOLAMIDE
     Indication: Product used for unknown indication
     Dosage: UNK
     Route: 065
  14. LATANOPROST [Concomitant]
     Active Substance: LATANOPROST
     Indication: Product used for unknown indication
     Dosage: UNK
     Route: 065
  15. LOSARTAN POTASSIUM [Concomitant]
     Active Substance: LOSARTAN POTASSIUM
     Indication: Product used for unknown indication
     Dosage: UNK
     Route: 065

REACTIONS (46)
  - Strangulated hernia [Recovering/Resolving]
  - Essential tremor [Not Recovered/Not Resolved]
  - White blood cell count increased [Not Recovered/Not Resolved]
  - Macular degeneration [Unknown]
  - Parkinson^s disease [Unknown]
  - Glaucoma [Unknown]
  - Dizziness [Not Recovered/Not Resolved]
  - Platelet count increased [Recovering/Resolving]
  - Neoplasm skin [Unknown]
  - Fall [Unknown]
  - Eye disorder [Unknown]
  - Hypoacusis [Unknown]
  - Gait disturbance [Unknown]
  - Visual impairment [Unknown]
  - Intraocular pressure increased [Unknown]
  - Red blood cell count increased [Unknown]
  - Rash [Unknown]
  - Tremor [Unknown]
  - Blood sodium decreased [Not Recovered/Not Resolved]
  - Blood potassium decreased [Not Recovered/Not Resolved]
  - Dehydration [Not Recovered/Not Resolved]
  - Arthritis [Not Recovered/Not Resolved]
  - Platelet count abnormal [Not Recovered/Not Resolved]
  - Arthropathy [Unknown]
  - Depression [Unknown]
  - Skin lesion [Unknown]
  - Walking aid user [Unknown]
  - Hypersensitivity [Unknown]
  - Nervousness [Unknown]
  - Mobility decreased [Unknown]
  - Muscle twitching [Recovered/Resolved]
  - Hearing aid user [Unknown]
  - Mouth breathing [Unknown]
  - Dental caries [Unknown]
  - Illness [Unknown]
  - Infection [Not Recovered/Not Resolved]
  - Fatigue [Unknown]
  - Dyspnoea [Unknown]
  - Peripheral swelling [Unknown]
  - Asthenia [Unknown]
  - Haemoglobin decreased [Unknown]
  - Red blood cell count decreased [Not Recovered/Not Resolved]
  - Contusion [Unknown]
  - Blood cholesterol increased [Unknown]
  - Nasopharyngitis [Unknown]
  - Hypertension [Unknown]

NARRATIVE: CASE EVENT DATE: 20170101
